FAERS Safety Report 9113286 (Version 1)
Quarter: 2013Q1

REPORT INFORMATION
  Report Type: Spontaneous
  Country: US (occurrence: US)
  Receive Date: 20130211
  Receipt Date: 20130211
  Transmission Date: 20140127
  Serious: Yes (Other)
  Sender: FDA-Public Use
  Company Number: US-ELI_LILLY_AND_COMPANY-US201302000380

PATIENT
  Sex: Male

DRUGS (2)
  1. HUMATROPE [Suspect]
     Indication: HYPOTHALAMO-PITUITARY DISORDER
     Dosage: UNK, UNKNOWN
     Route: 065
  2. TESTOSTERONE [Concomitant]
     Dosage: UNK, UNKNOWN
     Route: 065

REACTIONS (6)
  - Traumatic fracture [Unknown]
  - Encephalopathy [Unknown]
  - Mental retardation [Unknown]
  - Convulsion [Unknown]
  - Gastroenteritis [Unknown]
  - Colitis [Unknown]
